FAERS Safety Report 6249990-5 (Version None)
Quarter: 2009Q2

REPORT INFORMATION
  Report Type: 
  Country: None (occurrence: None)
  Receive Date: 20090625
  Receipt Date: 20090610
  Transmission Date: 20091009
  Serious: Yes (Congenital Anomaly)
  Sender: FDA-Public Use
  Company Number: KV200900677

PATIENT
  Sex: Male

DRUGS (1)
  1. PRIMACARE(PRENATAL VITAMIN) TABLET [Suspect]
     Indication: DRUG EXPOSURE DURING PREGNANCY
     Dosage: ORAL
     Route: 048
     Dates: start: 20070101, end: 20071231

REACTIONS (3)
  - CONGENITAL ANOMALY [None]
  - HYPOSPADIAS [None]
  - MATERNAL DRUGS AFFECTING FOETUS [None]
